FAERS Safety Report 22287740 (Version 2)
Quarter: 2023Q2

REPORT INFORMATION
  Report Type: Spontaneous
  Country: JP (occurrence: JP)
  Receive Date: 20230505
  Receipt Date: 20230601
  Transmission Date: 20230722
  Serious: Yes (Hospitalization, Other)
  Sender: FDA-Public Use
  Company Number: JP-MYLANLABS-2023M1045153

PATIENT
  Age: 6 Decade
  Sex: Female

DRUGS (1)
  1. EFFEXOR XR [Suspect]
     Active Substance: VENLAFAXINE HYDROCHLORIDE
     Indication: Depression
     Dosage: 2250 MILLIGRAM
     Route: 048
     Dates: start: 20230425, end: 202304

REACTIONS (5)
  - Seizure [Recovered/Resolved]
  - Serotonin syndrome [Recovered/Resolved]
  - Overdose [Recovered/Resolved]
  - Cognitive disorder [Recovered/Resolved]
  - Tremor [Recovered/Resolved]

NARRATIVE: CASE EVENT DATE: 20230401
